FAERS Safety Report 7132620-8 (Version None)
Quarter: 2010Q4

REPORT INFORMATION
  Report Type: 
  Country: None (occurrence: None)
  Receive Date: 20101202
  Receipt Date: 20101122
  Transmission Date: 20110411
  Serious: Yes (Other)
  Sender: FDA-Public Use
  Company Number: ES-JNJFOC-20100304214

PATIENT
  Sex: Female
  Weight: 53 kg

DRUGS (12)
  1. PREZISTA [Suspect]
     Indication: HIV INFECTION
     Route: 048
  2. PREZISTA [Suspect]
     Route: 048
  3. PREZISTA [Suspect]
     Route: 048
  4. RALTEGRAVIR [Suspect]
     Indication: HIV INFECTION
     Route: 048
  5. RALTEGRAVIR [Suspect]
     Route: 048
  6. RALTEGRAVIR [Suspect]
     Route: 048
  7. TRUVADA [Suspect]
     Indication: HIV INFECTION
  8. TRUVADA [Suspect]
  9. NORVIR [Suspect]
     Indication: HIV INFECTION
  10. NORVIR [Suspect]
  11. NORVIR [Suspect]
  12. COMBIVIR [Suspect]
     Indication: HIV INFECTION

REACTIONS (4)
  - DRUG EXPOSURE DURING PREGNANCY [None]
  - PREMATURE LABOUR [None]
  - PREMATURE RUPTURE OF MEMBRANES [None]
  - TREATMENT NONCOMPLIANCE [None]
